FAERS Safety Report 10495876 (Version 2)
Quarter: 2014Q4

REPORT INFORMATION
  Report Type: Spontaneous
  Country: HU (occurrence: HU)
  Receive Date: 20141003
  Receipt Date: 20141010
  Transmission Date: 20150528
  Serious: Yes (Other)
  Sender: FDA-Public Use
  Company Number: HU-PFIZER INC-2014269723

PATIENT
  Age: 67 Year
  Sex: Female

DRUGS (1)
  1. CARDURA [Suspect]
     Active Substance: DOXAZOSIN MESYLATE
     Indication: HYPERTENSION
     Dosage: UNKNOWN

REACTIONS (2)
  - Drug ineffective [Unknown]
  - Blood pressure inadequately controlled [Not Recovered/Not Resolved]
